FAERS Safety Report 4950887-9 (Version None)
Quarter: 2006Q1

REPORT INFORMATION
  Report Type: 
  Country: None (occurrence: None)
  Receive Date: 20060316
  Receipt Date: 20060310
  Transmission Date: 20060701
  Serious: Yes (Life-Threatening, Hospitalization)
  Sender: FDA-Public Use
  Company Number: HQWYE313613MAR06

PATIENT
  Age: 62 Year
  Sex: Female

DRUGS (6)
  1. RAPAMUNE [Suspect]
     Indication: PROPHYLAXIS AGAINST TRANSPLANT REJECTION
     Dosage: SEE IMAGE
     Route: 048
     Dates: start: 20051229, end: 20060306
  2. RAPAMUNE [Suspect]
     Indication: PROPHYLAXIS AGAINST TRANSPLANT REJECTION
     Dosage: SEE IMAGE
     Route: 048
     Dates: start: 20060311
  3. CO-TRIMAZOLE ^DAKOTA PHARM^ (SULFAMETHOXAZOLE/TRIMETHOPRIM) [Concomitant]
  4. MEPREDNISONE [Concomitant]
  5. MYCOPHENOLATE MOFETIL [Concomitant]
  6. RANITIDINE [Concomitant]

REACTIONS (3)
  - DEPRESSED LEVEL OF CONSCIOUSNESS [None]
  - ENCEPHALITIS [None]
  - HEPATIC ENCEPHALOPATHY [None]
